FAERS Safety Report 7672576-2 (Version None)
Quarter: 2011Q3

REPORT INFORMATION
  Report Type: 
  Country: None (occurrence: None)
  Receive Date: 20110809
  Receipt Date: 20110727
  Transmission Date: 20111222
  Serious: Yes (Other)
  Sender: FDA-Public Use
  Company Number: PT-MYLANLABS-2011S1016110

PATIENT
  Age: 55 Year
  Sex: Female
  Weight: 58 kg

DRUGS (1)
  1. CIPROFLAXACIN [Suspect]
     Indication: URINARY TRACT INFECTION
     Dates: start: 20040101

REACTIONS (3)
  - EYELID OEDEMA [None]
  - PRURITUS GENERALISED [None]
  - RASH PAPULAR [None]
